FAERS Safety Report 5043136-7 (Version None)
Quarter: 2006Q3

REPORT INFORMATION
  Report Type: 
  Country: None (occurrence: None)
  Receive Date: 20060705
  Receipt Date: 20060517
  Transmission Date: 20061208
  Serious: Yes (Hospitalization)
  Sender: FDA-Public Use
  Company Number: 2006AP02290

PATIENT
  Age: 13575 Day
  Sex: Female

DRUGS (1)
  1. ZOLADEX [Suspect]
     Indication: ENDOMETRIOSIS
     Route: 058
     Dates: start: 20060304, end: 20060401

REACTIONS (9)
  - DIZZINESS [None]
  - GAIT DISTURBANCE [None]
  - HEADACHE [None]
  - HYPERVENTILATION [None]
  - HYPOAESTHESIA [None]
  - INSOMNIA [None]
  - NAUSEA [None]
  - STRESS [None]
  - VOMITING [None]
